FAERS Safety Report 16236916 (Version 1)
Quarter: 2019Q2

REPORT INFORMATION
  Report Type: Spontaneous
  Country: PT (occurrence: PT)
  Receive Date: 20190425
  Receipt Date: 20190425
  Transmission Date: 20190711
  Serious: Yes (Life-Threatening)
  Sender: FDA-Public Use
  Company Number: PT-TEVA-2019-PT-1042344

PATIENT
  Age: 11 Year
  Sex: Female
  Weight: 45 kg

DRUGS (3)
  1. ONDANSETRON [Concomitant]
     Active Substance: ONDANSETRON
  2. MERCAPTOPURINE. [Concomitant]
     Active Substance: MERCAPTOPURINE
  3. METHOTREXATE. [Suspect]
     Active Substance: METHOTREXATE
     Indication: ACUTE LYMPHOCYTIC LEUKAEMIA
     Dosage: 5G/M2 IN INTRAVENOUS INFUSION OF 24H IN 17/11/2017 AND 12 MG INTRATHECAL IN 18/11/2017
     Dates: start: 20171117, end: 20171118

REACTIONS (2)
  - Cerebral ischaemia [Recovered/Resolved]
  - Hemiparesis [Recovered/Resolved]

NARRATIVE: CASE EVENT DATE: 20171125
